FAERS Safety Report 23769584 (Version 1)
Quarter: 2024Q2

REPORT INFORMATION
  Report Type: Report from Study
  Country: DE (occurrence: DE)
  Receive Date: 20240422
  Receipt Date: 20240422
  Transmission Date: 20240716
  Serious: Yes (Death, Other)
  Sender: FDA-Public Use
  Company Number: DE-002147023-NVSC2021DE210772

PATIENT
  Sex: Female

DRUGS (16)
  1. METHOTREXATE SODIUM [Suspect]
     Active Substance: METHOTREXATE SODIUM
     Dosage: UNK; 15.0; T0
     Dates: start: 20160629
  2. METHOTREXATE SODIUM [Suspect]
     Active Substance: METHOTREXATE SODIUM
     Dosage: UNK; 15.0; T1
     Dates: start: 20160830
  3. METHOTREXATE SODIUM [Suspect]
     Active Substance: METHOTREXATE SODIUM
     Dosage: UNK; 15.0; T2
     Dates: start: 20161108
  4. METHOTREXATE SODIUM [Suspect]
     Active Substance: METHOTREXATE SODIUM
     Dosage: UNK; 15.0; T3
     Dates: start: 20170503
  5. METHOTREXATE SODIUM [Suspect]
     Active Substance: METHOTREXATE SODIUM
     Dosage: UNK; 15.0; T4
     Dates: start: 20171106
  6. SULFASALAZINE [Suspect]
     Active Substance: SULFASALAZINE
     Dosage: 2000 MG
     Dates: start: 20181116
  7. SULFASALAZINE [Suspect]
     Active Substance: SULFASALAZINE
     Dosage: 2000 MG
     Dates: start: 20190510
  8. SULFASALAZINE [Suspect]
     Active Substance: SULFASALAZINE
     Dosage: 2000 MG
     Dates: start: 20191205
  9. OLUMIANT [Suspect]
     Active Substance: BARICITINIB
     Dosage: 4 MG
     Route: 065
     Dates: start: 201908, end: 202006
  10. RINVOQ [Suspect]
     Active Substance: UPADACITINIB
     Dosage: 15 MG; T11
     Route: 065
     Dates: start: 20210616
  11. RINVOQ [Suspect]
     Active Substance: UPADACITINIB
     Dosage: 15 MG; T13
     Route: 065
     Dates: start: 20220810
  12. RINVOQ [Suspect]
     Active Substance: UPADACITINIB
     Dosage: 15 MG; T12
     Route: 065
     Dates: start: 20220112
  13. ERELZI [Suspect]
     Active Substance: ETANERCEPT-SZZS
     Dosage: 50 MG
     Route: 065
     Dates: start: 20201104, end: 202102
  14. BARICITINIB [Suspect]
     Active Substance: BARICITINIB
     Dosage: UNK
     Route: 065
  15. LEFLUNOMIDE [Suspect]
     Active Substance: LEFLUNOMIDE
     Dosage: 20 MG
     Route: 065
     Dates: start: 20180524
  16. LEFLUNOMIDE [Suspect]
     Active Substance: LEFLUNOMIDE
     Dosage: 20 MG
     Route: 065
     Dates: start: 20181116

REACTIONS (2)
  - Death [Fatal]
  - Respiratory tract infection [Not Recovered/Not Resolved]

NARRATIVE: CASE EVENT DATE: 20200910
